FAERS Safety Report 9199611 (Version 1)
Quarter: 2013Q1

REPORT INFORMATION
  Report Type: Spontaneous
  Country: US (occurrence: US)
  Receive Date: 20130329
  Receipt Date: 20130329
  Transmission Date: 20140127
  Serious: No
  Sender: FDA-Public Use
  Company Number: US-B.I. PHARMACEUTICALS,INC./RIDGEFIELD-2013-BI-07665BP

PATIENT
  Age: 56 None
  Sex: Female
  Weight: 64 kg

DRUGS (3)
  1. TRADJENTA [Suspect]
     Indication: TYPE 2 DIABETES MELLITUS
     Dosage: 5 MG
     Route: 048
     Dates: start: 2011
  2. GLUCOTROL XR [Concomitant]
     Route: 048
     Dates: start: 2009
  3. INSULIN [Concomitant]

REACTIONS (2)
  - Influenza [Not Recovered/Not Resolved]
  - Abnormal loss of weight [Not Recovered/Not Resolved]
